FAERS Safety Report 6511275-7 (Version None)
Quarter: 2009Q4

REPORT INFORMATION
  Report Type: 
  Country: None (occurrence: None)
  Receive Date: 20091222
  Receipt Date: 20090323
  Transmission Date: 20100525
  Serious: No
  Sender: FDA-Public Use
  Company Number: US-ASTRAZENECA-2009UW07271

PATIENT
  Age: 78 Year
  Sex: Female
  Weight: 75.3 kg

DRUGS (7)
  1. CRESTOR [Suspect]
     Indication: BLOOD CHOLESTEROL INCREASED
     Route: 048
     Dates: start: 20081122
  2. BENICAR [Concomitant]
     Indication: HYPERTENSION
  3. DILTIAZEM [Concomitant]
     Indication: HYPERTENSION
  4. BONIVA [Concomitant]
  5. BABY ASPIRIN [Concomitant]
  6. VITAMIN D [Concomitant]
  7. ICAPS [Concomitant]

REACTIONS (1)
  - RENAL FUNCTION TEST ABNORMAL [None]
